FAERS Safety Report 8606809 (Version 2)
Quarter: 2013Q2

REPORT INFORMATION
  Report Type: Spontaneous
  Country: US (occurrence: US)
  Receive Date: 20120611
  Receipt Date: 20130617
  Transmission Date: 20140414
  Serious: Yes (Disabling)
  Sender: FDA-Public Use
  Company Number: US-ASTRAZENECA-2012SE35761

PATIENT
  Age: 20754 Day
  Sex: Female
  Weight: 208 kg

DRUGS (7)
  1. NEXIUM [Suspect]
     Indication: GASTROOESOPHAGEAL REFLUX DISEASE
     Dosage: 20 TO 40MG ONCE A DAY
     Route: 048
     Dates: start: 2000, end: 2011
  2. NEXIUM [Suspect]
     Indication: DYSPEPSIA
     Dosage: 20 TO 40MG ONCE A DAY
     Route: 048
     Dates: start: 2000, end: 2011
  3. CIMETIDINE [Concomitant]
     Dosage: ABOUT 6 MONTH
  4. LOTREL [Concomitant]
     Dosage: 10-40 MG
  5. OMEPRAZOLE [Concomitant]
  6. CYCLOBENZAPRINE [Concomitant]
  7. MELOXICAM [Concomitant]

REACTIONS (12)
  - Ankle fracture [Unknown]
  - Limb injury [Unknown]
  - Cardiac disorder [Unknown]
  - Diabetes mellitus [Unknown]
  - Fall [Unknown]
  - Osteoporosis [Unknown]
  - Osteogenesis imperfecta [Unknown]
  - Calcium deficiency [Unknown]
  - Osteopenia [Unknown]
  - Arthritis [Unknown]
  - Bone pain [Unknown]
  - Multiple fractures [Unknown]
